FAERS Safety Report 13231565 (Version 2)
Quarter: 2017Q3

REPORT INFORMATION
  Report Type: Spontaneous
  Country: US (occurrence: US)
  Receive Date: 20170214
  Receipt Date: 20170720
  Transmission Date: 20171127
  Serious: Yes (Death, Hospitalization)
  Sender: FDA-Public Use
  Company Number: US-JNJFOC-20170210754

PATIENT
  Age: 69 Year
  Sex: Male

DRUGS (6)
  1. INVOKANA [Suspect]
     Active Substance: CANAGLIFLOZIN
     Indication: TYPE 2 DIABETES MELLITUS
     Route: 048
     Dates: start: 20140915, end: 20150202
  2. JANUVIA [Concomitant]
     Active Substance: SITAGLIPTIN PHOSPHATE
     Indication: PRODUCT USED FOR UNKNOWN INDICATION
     Route: 065
     Dates: start: 201410, end: 201502
  3. GLUCOPHAGE [Suspect]
     Active Substance: METFORMIN HYDROCHLORIDE
     Indication: PRODUCT USED FOR UNKNOWN INDICATION
     Route: 048
     Dates: start: 2015, end: 20150202
  4. LOVENOX [Suspect]
     Active Substance: ENOXAPARIN SODIUM
     Indication: FIBRIN D DIMER INCREASED
     Route: 058
     Dates: start: 20150202, end: 20150202
  5. TORADOL [Suspect]
     Active Substance: KETOROLAC TROMETHAMINE
     Indication: PRODUCT USED FOR UNKNOWN INDICATION
     Route: 065
     Dates: start: 20150202, end: 20150202
  6. GLUCOTROL [Concomitant]
     Active Substance: GLIPIZIDE
     Indication: PRODUCT USED FOR UNKNOWN INDICATION
     Route: 048
     Dates: start: 2014, end: 2015

REACTIONS (11)
  - Wound dehiscence [Fatal]
  - Renal impairment [Recovering/Resolving]
  - Encephalopathy [Recovering/Resolving]
  - Haemorrhagic stroke [Recovering/Resolving]
  - Haematemesis [Recovering/Resolving]
  - Extradural abscess [Recovering/Resolving]
  - Sepsis [Recovering/Resolving]
  - Haematoma [Recovering/Resolving]
  - Adult failure to thrive [Fatal]
  - Diabetic ketoacidosis [Recovering/Resolving]
  - Acute respiratory failure [Recovering/Resolving]

NARRATIVE: CASE EVENT DATE: 2015
